FAERS Safety Report 13506904 (Version 2)
Quarter: 2017Q2

REPORT INFORMATION
  Report Type: Report from Study
  Country: None (occurrence: IT)
  Receive Date: 20170502
  Receipt Date: 20170508
  Transmission Date: 20170830
  Serious: Yes (Death, Hospitalization)
  Sender: FDA-Public Use
  Company Number: IT-ABBVIE-17K-083-1961109-00

PATIENT
  Age: 82 Year
  Sex: Female
  Weight: 46 kg

DRUGS (7)
  1. DUODOPA [Suspect]
     Active Substance: CARBIDOPA\LEVODOPA
     Indication: PARKINSON^S DISEASE
     Dosage: MD 8(+3)?CR 3.6?ED 3
     Route: 050
     Dates: start: 20140728, end: 20170409
  2. LORAZEPAM. [Concomitant]
     Active Substance: LORAZEPAM
     Indication: ANXIOLYTIC THERAPY
     Route: 048
     Dates: start: 20160914, end: 20170409
  3. PANTORC [Concomitant]
     Active Substance: PANTOPRAZOLE SODIUM
     Indication: GASTRITIS
     Route: 048
  4. SINEMET [Concomitant]
     Active Substance: CARBIDOPA\LEVODOPA
     Indication: PARKINSON^S DISEASE
     Route: 048
  5. LAROXYL [Concomitant]
     Active Substance: AMITRIPTYLINE
     Indication: PRODUCT USED FOR UNKNOWN INDICATION
     Route: 048
  6. TACHIPIRINA [Concomitant]
     Active Substance: ACETAMINOPHEN
     Indication: PAIN IN EXTREMITY
     Route: 048
  7. PREGABALIN. [Concomitant]
     Active Substance: PREGABALIN
     Indication: NEURALGIA
     Route: 048
     Dates: start: 20160914, end: 20170409

REACTIONS (16)
  - Acute abdomen [Fatal]
  - Escherichia infection [Unknown]
  - Somnolence [Unknown]
  - General physical health deterioration [Fatal]
  - Oxygen saturation decreased [Unknown]
  - Device occlusion [Unknown]
  - Hypertrophic scar [Recovered/Resolved]
  - Sepsis [Fatal]
  - Decreased appetite [Fatal]
  - Urinary tract infection [Unknown]
  - Bradykinesia [Unknown]
  - Intestinal obstruction [Unknown]
  - Stoma site inflammation [Recovered/Resolved]
  - Respiratory failure [Fatal]
  - Rash [Unknown]
  - Spinal pain [Unknown]

NARRATIVE: CASE EVENT DATE: 20160405
